FAERS Safety Report 6446233-4 (Version None)
Quarter: 2009Q4

REPORT INFORMATION
  Report Type: 
  Country: None (occurrence: None)
  Receive Date: 20091119
  Receipt Date: 20091109
  Transmission Date: 20100525
  Serious: Yes (Life-Threatening, Hospitalization)
  Sender: FDA-Public Use
  Company Number: DE-SANOFI-AVENTIS-A04200900864

PATIENT
  Age: 80 Year
  Sex: Female
  Weight: 62 kg

DRUGS (2)
  1. HYDROXYCHLOROQUINE SULFATE [Suspect]
     Indication: LICHEN PLANUS
     Dosage: UNIT DOSE: 200 MG
     Route: 048
     Dates: start: 20051101
  2. HYDROXYCHLOROQUINE SULFATE [Suspect]
     Route: 048
     Dates: start: 20090101

REACTIONS (4)
  - CIRCULATORY COLLAPSE [None]
  - DISTURBANCE IN ATTENTION [None]
  - HYPOKALAEMIA [None]
  - HYPONATRAEMIA [None]
